FAERS Safety Report 14084988 (Version 2)
Quarter: 2018Q1

REPORT INFORMATION
  Report Type: Report from Study
  Country: None (occurrence: CO)
  Receive Date: 20171013
  Receipt Date: 20180227
  Transmission Date: 20180508
  Serious: Yes (Hospitalization, Other)
  Sender: FDA-Public Use
  Company Number: CO-ABBVIE-17K-036-2128429-00

PATIENT
  Age: 66 Year
  Sex: Female
  Weight: 80 kg

DRUGS (4)
  1. ASPIRIN. [Concomitant]
     Active Substance: ASPIRIN
     Indication: PRODUCT USED FOR UNKNOWN INDICATION
  2. CARVEDILOL. [Concomitant]
     Active Substance: CARVEDILOL
     Indication: PRODUCT USED FOR UNKNOWN INDICATION
  3. HUMIRA [Suspect]
     Active Substance: ADALIMUMAB
     Indication: RHEUMATOID ARTHRITIS
     Route: 058
     Dates: start: 20090724, end: 20180206
  4. PREDNISOLONE. [Concomitant]
     Active Substance: PREDNISOLONE
     Indication: PRODUCT USED FOR UNKNOWN INDICATION

REACTIONS (10)
  - Coma [Recovered/Resolved]
  - Mitral valve replacement [Recovering/Resolving]
  - Abdominal hernia [Recovering/Resolving]
  - Pain [Recovering/Resolving]
  - Spinal pain [Recovering/Resolving]
  - Oedema peripheral [Recovering/Resolving]
  - Post procedural complication [Recovered/Resolved]
  - Foreign body in respiratory tract [Unknown]
  - Procedural complication [Unknown]
  - Arthralgia [Recovering/Resolving]

NARRATIVE: CASE EVENT DATE: 2009
